FAERS Safety Report 9911018 (Version 2)
Quarter: 2015Q3

REPORT INFORMATION
  Report Type: Spontaneous
  Country: US (occurrence: US)
  Receive Date: 20140219
  Receipt Date: 20150811
  Transmission Date: 20151125
  Serious: No
  Sender: FDA-Public Use
  Company Number: US-GILEAD-2011-0048668

PATIENT
  Age: 63 Year
  Sex: Female

DRUGS (2)
  1. LETAIRIS [Suspect]
     Active Substance: AMBRISENTAN
     Indication: PRODUCT USED FOR UNKNOWN INDICATION
     Dosage: UNK
  2. LETAIRIS [Suspect]
     Active Substance: AMBRISENTAN
     Dosage: 2.5 MG, UNK
     Route: 048
     Dates: start: 20111102, end: 20111227

REACTIONS (2)
  - Weight increased [Unknown]
  - Periorbital oedema [Unknown]

NARRATIVE: CASE EVENT DATE: 20111123
